FAERS Safety Report 16769951 (Version 3)
Quarter: 2019Q4

REPORT INFORMATION
  Report Type: Spontaneous
  Country: DE (occurrence: DE)
  Receive Date: 20190904
  Receipt Date: 20191018
  Transmission Date: 20200122
  Serious: Yes (Other)
  Sender: FDA-Public Use
  Company Number: DE-US-PROVELL PHARMACEUTICALS LLC-E2B_90070294

PATIENT
  Age: 60 Year
  Sex: Female
  Weight: 60 kg

DRUGS (3)
  1. EUTHYROX [Suspect]
     Active Substance: LEVOTHYROXINE SODIUM
     Indication: POST PROCEDURAL HYPOTHYROIDISM
     Dosage: THREE QUARTERS TO ONE YEAR
     Dates: end: 20190805
  2. EUTHYROX [Suspect]
     Active Substance: LEVOTHYROXINE SODIUM
     Dosage: DOSE REINTRODUCED
     Dates: start: 20190809, end: 201908
  3. EUTHYROX [Suspect]
     Active Substance: LEVOTHYROXINE SODIUM
     Dosage: DOSE REDUCED
     Dates: start: 20190808

REACTIONS (5)
  - Malaise [Recovering/Resolving]
  - Somnolence [Recovering/Resolving]
  - Flatulence [Recovering/Resolving]
  - Nausea [Recovering/Resolving]
  - Glaucoma [Recovering/Resolving]
